FAERS Safety Report 4957077-4 (Version None)
Quarter: 2006Q1

REPORT INFORMATION
  Report Type: 
  Country: None (occurrence: None)
  Receive Date: 20060323
  Receipt Date: 20060306
  Transmission Date: 20060701
  Serious: Yes (Hospitalization, Disabling)
  Sender: FDA-Public Use
  Company Number: 408705

PATIENT
  Age: 17 Year
  Sex: Male
  Weight: 165 kg

DRUGS (1)
  1. ACCUTANE [Suspect]
     Indication: ACNE CYSTIC
     Dosage: 40 MG 2 PER DAY ORAL
     Route: 048
     Dates: start: 19870202, end: 19950602

REACTIONS (39)
  - ABDOMINAL PAIN [None]
  - AFFECTIVE DISORDER [None]
  - ANAEMIA [None]
  - ANHEDONIA [None]
  - ANXIETY [None]
  - ARTHRALGIA [None]
  - BIPOLAR DISORDER [None]
  - CARDIAC DISORDER [None]
  - COLITIS [None]
  - CROHN'S DISEASE [None]
  - DEPRESSION [None]
  - DIZZINESS [None]
  - DYSPEPSIA [None]
  - ERECTILE DYSFUNCTION [None]
  - GASTRIC DISORDER [None]
  - GASTROINTESTINAL DISORDER [None]
  - GASTROOESOPHAGEAL REFLUX DISEASE [None]
  - ILEITIS [None]
  - IMPAIRED WORK ABILITY [None]
  - INFLAMMATORY BOWEL DISEASE [None]
  - INFLUENZA LIKE ILLNESS [None]
  - INJURY [None]
  - INSOMNIA [None]
  - INTESTINAL HAEMORRHAGE [None]
  - LETHARGY [None]
  - LIP DRY [None]
  - MELAENA [None]
  - MENTAL DISORDER [None]
  - MYALGIA [None]
  - NASAL DISCOMFORT [None]
  - NAUSEA [None]
  - NIGHT BLINDNESS [None]
  - PAIN [None]
  - PSYCHOTIC DISORDER [None]
  - RECTAL HAEMORRHAGE [None]
  - SCHIZOPHRENIA, PARANOID TYPE [None]
  - SUICIDAL IDEATION [None]
  - VISUAL DISTURBANCE [None]
  - VOMITING [None]
